FAERS Safety Report 4373285-8 (Version None)
Quarter: 2004Q2

REPORT INFORMATION
  Report Type: 
  Country: None (occurrence: None)
  Receive Date: 20040603
  Receipt Date: 20040601
  Transmission Date: 20050107
  Serious: Yes (Death)
  Sender: FDA-Public Use
  Company Number: MK200405-0113-2

PATIENT
  Sex: Male

DRUGS (5)
  1. METHADOSE [Suspect]
     Dates: start: 20030221
  2. ALPRAZOLAM [Concomitant]
  3. ETHANOL [Concomitant]
  4. CARISOPRODOL [Concomitant]
  5. MEPROBAMATE [Concomitant]

REACTIONS (4)
  - ACCIDENT [None]
  - ALCOHOL POISONING [None]
  - DRUG SCREEN POSITIVE [None]
  - DRUG TOXICITY [None]
